FAERS Safety Report 8426781-8 (Version None)
Quarter: 2012Q2

REPORT INFORMATION
  Report Type: 
  Country: None (occurrence: None)
  Receive Date: 20120611
  Receipt Date: 20120607
  Transmission Date: 20120825
  Serious: Yes (Death, Hospitalization)
  Sender: FDA-Public Use
  Company Number: PHHY2012US048431

PATIENT
  Sex: Male

DRUGS (6)
  1. LISINOPRIL [Concomitant]
  2. CLOPIDOGREL [Concomitant]
  3. ATORVASTATIN CALCIUM [Concomitant]
  4. METOPROLOL TARTRATE [Concomitant]
  5. AMIODARONE HCL [Suspect]
     Indication: ATRIAL FIBRILLATION
     Dosage: 400 MG, BID
  6. ASPIRIN [Concomitant]

REACTIONS (7)
  - CHEST PAIN [None]
  - ACUTE RESPIRATORY FAILURE [None]
  - HYPOXIA [None]
  - OXYGEN SATURATION DECREASED [None]
  - DYSPNOEA [None]
  - PULMONARY ALVEOLAR HAEMORRHAGE [None]
  - ACUTE RESPIRATORY DISTRESS SYNDROME [None]
